FAERS Safety Report 16797599 (Version 4)
Quarter: 2019Q4

REPORT INFORMATION
  Report Type: Spontaneous
  Country: US (occurrence: US)
  Receive Date: 20190912
  Receipt Date: 20191104
  Transmission Date: 20200122
  Serious: Yes (Hospitalization)
  Sender: FDA-Public Use
  Company Number: US-CELGENEUS-USA-20190706334

PATIENT
  Age: 70 Year
  Sex: Female

DRUGS (2)
  1. THALOMID [Suspect]
     Active Substance: THALIDOMIDE
     Indication: GASTROINTESTINAL ANGIODYSPLASIA
     Dosage: 100 MILLIGRAM
     Route: 048
     Dates: start: 20190426
  2. THALOMID [Suspect]
     Active Substance: THALIDOMIDE
     Indication: OFF LABEL USE

REACTIONS (9)
  - Metabolic encephalopathy [Unknown]
  - Septic embolus [Unknown]
  - Osteomyelitis [Unknown]
  - Gastrointestinal haemorrhage [Unknown]
  - Urosepsis [Unknown]
  - Clostridium difficile infection [Unknown]
  - Large intestinal obstruction [Unknown]
  - Cardiac failure congestive [Unknown]
  - Skin haemorrhage [Unknown]

NARRATIVE: CASE EVENT DATE: 2019
